FAERS Safety Report 6922653-6 (Version None)
Quarter: 2010Q3

REPORT INFORMATION
  Report Type: 
  Country: None (occurrence: None)
  Receive Date: 20100813
  Receipt Date: 20100802
  Transmission Date: 20110219
  Serious: Yes (Other)
  Sender: FDA-Public Use
  Company Number: PHHY2010FR51746

PATIENT
  Sex: Female

DRUGS (2)
  1. TAREG [Suspect]
     Dosage: UNK
     Route: 048
     Dates: end: 20090101
  2. KETOPROFEN [Suspect]
     Indication: RHEUMATOID ARTHRITIS
     Dosage: UNK
     Dates: end: 20090101

REACTIONS (1)
  - TOXIC SKIN ERUPTION [None]
